FAERS Safety Report 7948528-1 (Version None)
Quarter: 2011Q4

REPORT INFORMATION
  Report Type: 
  Country: None (occurrence: None)
  Receive Date: 20111128
  Receipt Date: 20111128
  Transmission Date: 20120403
  Serious: Yes (Hospitalization)
  Sender: FDA-Public Use
  Company Number: None

PATIENT
  Sex: Female
  Weight: 15.5 kg

DRUGS (1)
  1. DEXAMETHASONE [Suspect]
     Dosage: 28 MG

REACTIONS (12)
  - SHOCK [None]
  - PUPILLARY DISORDER [None]
  - HYPOTENSION [None]
  - RESPIRATORY FAILURE [None]
  - CONVULSION [None]
  - COAGULOPATHY [None]
  - BRAIN HERNIATION [None]
  - BACILLUS INFECTION [None]
  - SEPSIS [None]
  - RENAL FAILURE [None]
  - MULTI-ORGAN FAILURE [None]
  - HAEMORRHAGE INTRACRANIAL [None]
